FAERS Safety Report 7116683-1 (Version None)
Quarter: 2010Q4

REPORT INFORMATION
  Report Type: 
  Country: None (occurrence: None)
  Receive Date: 20101122
  Receipt Date: 20101116
  Transmission Date: 20110411
  Serious: Yes (Hospitalization)
  Sender: FDA-Public Use
  Company Number: B0684661A

PATIENT
  Sex: Male
  Weight: 11.9 kg

DRUGS (5)
  1. AUGMENTIN '125' [Suspect]
     Indication: PHARYNGITIS
     Dosage: 1UNIT TWICE PER DAY
     Route: 048
     Dates: start: 20100905, end: 20100910
  2. PERIDYS [Concomitant]
     Route: 065
  3. PRIMALAN [Concomitant]
     Route: 065
     Dates: end: 20100905
  4. DOLIPRANE [Concomitant]
     Indication: PHARYNGITIS
     Route: 065
     Dates: start: 20100905, end: 20100908
  5. ADVIL [Concomitant]
     Route: 065
     Dates: start: 20100905, end: 20100907

REACTIONS (5)
  - ARTHRITIS [None]
  - GAIT DISTURBANCE [None]
  - JOINT EFFUSION [None]
  - OEDEMA [None]
  - URTICARIA [None]
